FAERS Safety Report 7909837-5 (Version None)
Quarter: 2011Q4

REPORT INFORMATION
  Report Type: 
  Country: None (occurrence: None)
  Receive Date: 20111111
  Receipt Date: 20111109
  Transmission Date: 20120403
  Serious: Yes (Life-Threatening, Other)
  Sender: FDA-Public Use
  Company Number: US-MERCK-1110USA01167

PATIENT
  Age: 36 Year
  Sex: Male

DRUGS (1)
  1. ZOCOR [Suspect]
     Indication: HYPERLIPIDAEMIA
     Route: 048
     Dates: start: 20110915, end: 20111003

REACTIONS (4)
  - RHABDOMYOLYSIS [None]
  - RENAL FAILURE [None]
  - HEPATIC FAILURE [None]
  - RASH [None]
